FAERS Safety Report 5394118-7 (Version None)
Quarter: 2007Q3

REPORT INFORMATION
  Report Type: 
  Country: None (occurrence: None)
  Receive Date: 20070723
  Receipt Date: 20070713
  Transmission Date: 20080115
  Serious: Yes (Hospitalization)
  Sender: FDA-Public Use
  Company Number: US-AMGEN-US233856

PATIENT
  Sex: Male

DRUGS (25)
  1. PROCRIT [Suspect]
     Indication: ANAEMIA
     Route: 058
     Dates: start: 20061013, end: 20061020
  2. FENTANYL TRANSDERMAL SYSTEM [Concomitant]
     Route: 042
     Dates: start: 20061013, end: 20061015
  3. BUPIVACAINE [Concomitant]
     Route: 042
     Dates: start: 20061013, end: 20061015
  4. VITAMIN CAP [Concomitant]
     Route: 048
     Dates: start: 20061013, end: 20061023
  5. FOLATE SODIUM [Concomitant]
     Route: 048
     Dates: start: 20061013, end: 20061018
  6. THIAMINE [Concomitant]
     Route: 048
     Dates: start: 20061013, end: 20061018
  7. COMBIVENT [Concomitant]
     Dates: start: 20061013
  8. LASIX [Concomitant]
     Route: 042
     Dates: start: 20061013
  9. OXYCODONE HCL [Concomitant]
     Route: 048
     Dates: start: 20061012, end: 20061023
  10. LORAZEPAM [Concomitant]
     Route: 042
     Dates: start: 20061013, end: 20061020
  11. ACETAMINOPHEN [Concomitant]
     Route: 048
  12. POTASSIUM CHLORIDE [Concomitant]
     Route: 042
     Dates: start: 20061016, end: 20061021
  13. LOVENOX [Concomitant]
     Route: 058
     Dates: start: 20061016
  14. LABETALOL HCL [Concomitant]
     Dates: start: 20061016
  15. DULCOLAX [Concomitant]
     Dates: start: 20061017, end: 20061017
  16. ZANTAC 150 [Concomitant]
     Route: 048
     Dates: start: 20061017
  17. SENNA [Concomitant]
     Route: 048
     Dates: start: 20061017
  18. MAGNESIA [Concomitant]
     Route: 048
     Dates: start: 20061017, end: 20061022
  19. REGULAR ILETIN I [Concomitant]
     Route: 058
     Dates: start: 20061017
  20. COLACE [Concomitant]
     Route: 048
  21. NEOSTIGMINE [Concomitant]
     Dates: start: 20061019, end: 20061019
  22. HYDROMORPHONE HCL [Concomitant]
     Route: 042
     Dates: start: 20061021, end: 20061023
  23. MS CONTIN [Concomitant]
     Route: 048
     Dates: start: 20061020
  24. FLAGYL [Concomitant]
     Route: 048
     Dates: start: 20061020
  25. BACLOFEN [Concomitant]
     Route: 048
     Dates: start: 20061020

REACTIONS (3)
  - DEEP VEIN THROMBOSIS [None]
  - PLEURAL EFFUSION [None]
  - RESPIRATORY FAILURE [None]
